FAERS Safety Report 25381592 (Version 2)
Quarter: 2025Q2

REPORT INFORMATION
  Report Type: Spontaneous
  Country: US (occurrence: US)
  Receive Date: 20250531
  Receipt Date: 20250614
  Transmission Date: 20250717
  Serious: Yes (Other)
  Sender: CELLTRION
  Company Number: US-CELLTRION INC.-2025US016481

PATIENT

DRUGS (46)
  1. INFLIXIMAB [Suspect]
     Active Substance: INFLIXIMAB
     Indication: Product used for unknown indication
     Route: 065
  2. ENBREL [Suspect]
     Active Substance: ETANERCEPT
     Indication: Psoriatic arthropathy
     Dosage: 50 MILLIGRAM, QWK (ADDITIONAL INFORMATION ON DRUG: UNIT=SURECLICK)
     Route: 058
     Dates: end: 202504
  3. NORCO [Concomitant]
     Active Substance: ACETAMINOPHEN\HYDROCODONE BITARTRATE
     Route: 048
  4. AMITRIPTYLINE HYDROCHLORIDE [Concomitant]
     Active Substance: AMITRIPTYLINE HYDROCHLORIDE
     Route: 048
  5. ANASTROZOLE [Concomitant]
     Active Substance: ANASTROZOLE
     Route: 048
  6. BIOTIN [Concomitant]
     Active Substance: BIOTIN
  7. CELEBREX [Concomitant]
     Active Substance: CELECOXIB
     Route: 048
  8. ACRIVASTINE [Concomitant]
     Active Substance: ACRIVASTINE
     Route: 048
  9. DOCUSATE SODIUM [Concomitant]
     Active Substance: DOCUSATE SODIUM
     Route: 048
  10. TRULICITY [Concomitant]
     Active Substance: DULAGLUTIDE
     Dosage: UNK UNK, QWK
     Route: 058
  11. SYNJARDY XR [Concomitant]
     Active Substance: EMPAGLIFLOZIN\METFORMIN HYDROCHLORIDE
     Route: 048
  12. FAMOTIDINE [Concomitant]
     Active Substance: FAMOTIDINE
     Route: 048
  13. HYDROCHLOROTHIAZIDE [Concomitant]
     Active Substance: HYDROCHLOROTHIAZIDE
     Route: 048
  14. METFORMIN HYDROCHLORIDE [Concomitant]
     Active Substance: METFORMIN HYDROCHLORIDE
     Route: 048
  15. REGLAN [Concomitant]
     Active Substance: METOCLOPRAMIDE HYDROCHLORIDE
     Route: 048
  16. POLYCARBOPHIL [Concomitant]
     Active Substance: POLYCARBOPHIL
     Route: 048
  17. PROMETHAZINE HYDROCHLORIDE [Concomitant]
     Active Substance: PROMETHAZINE HYDROCHLORIDE
     Route: 048
  18. MOUNJARO [Concomitant]
     Active Substance: TIRZEPATIDE
     Route: 058
  19. TOPIRAMATE [Concomitant]
     Active Substance: TOPIRAMATE
     Route: 048
  20. TRAZODONE HCL [Concomitant]
     Active Substance: TRAZODONE HYDROCHLORIDE
     Route: 048
  21. VENLAFAXINE HCL [Concomitant]
     Active Substance: VENLAFAXINE HYDROCHLORIDE
     Route: 048
  22. XANAX [Concomitant]
     Active Substance: ALPRAZOLAM
     Route: 048
  23. ADDERALL [Concomitant]
     Active Substance: AMPHETAMINE ASPARTATE\AMPHETAMINE SULFATE\DEXTROAMPHETAMINE SACCHARATE\DEXTROAMPHETAMINE SULFATE
     Route: 048
  24. ATORVASTATIN CALCIUM [Concomitant]
     Active Substance: ATORVASTATIN CALCIUM
     Route: 048
  25. TUMS [Concomitant]
     Active Substance: CALCIUM CARBONATE
     Route: 048
  26. INVOKANA [Concomitant]
     Active Substance: CANAGLIFLOZIN
     Route: 048
  27. OLUX [Concomitant]
     Active Substance: CLOBETASOL PROPIONATE
     Route: 061
  28. FARXIGA [Concomitant]
     Active Substance: DAPAGLIFLOZIN PROPANEDIOL
     Route: 048
  29. DESOWEN [Concomitant]
     Active Substance: DESONIDE
     Route: 061
  30. JARDIANCE [Concomitant]
     Active Substance: EMPAGLIFLOZIN
     Route: 048
  31. ESTRADIOL [Concomitant]
     Active Substance: ESTRADIOL
     Route: 048
  32. LUNESTA [Concomitant]
     Active Substance: ESZOPICLONE
     Route: 048
  33. EXENATIDE [Concomitant]
     Active Substance: EXENATIDE
     Route: 058
  34. FLUOCINONIDE [Concomitant]
     Active Substance: FLUOCINONIDE
  35. BREO ELLIPTA [Concomitant]
     Active Substance: FLUTICASONE FUROATE\VILANTEROL TRIFENATATE
  36. FOLIC ACID [Concomitant]
     Active Substance: FOLIC ACID
     Route: 048
  37. IBUPROFEN [Concomitant]
     Active Substance: IBUPROFEN
     Route: 048
  38. KETOROLAC TROMETHAMINE [Concomitant]
     Active Substance: KETOROLAC TROMETHAMINE
  39. KRILL OIL [Concomitant]
     Active Substance: DIETARY SUPPLEMENT\KRILL OIL
     Route: 048
  40. VICTOZA [Concomitant]
     Active Substance: LIRAGLUTIDE
     Route: 058
  41. OFLOXACIN [Concomitant]
     Active Substance: OFLOXACIN
  42. LIVALO [Concomitant]
     Active Substance: PITAVASTATIN CALCIUM
     Route: 048
  43. PREDNISOLONE ACETATE [Concomitant]
     Active Substance: PREDNISOLONE ACETATE
  44. PSEUDOEPHEDRINE HYDROCHLORIDE [Concomitant]
     Active Substance: PSEUDOEPHEDRINE HYDROCHLORIDE
     Route: 048
  45. DESYREL [Concomitant]
     Active Substance: TRAZODONE HYDROCHLORIDE
     Route: 048
  46. TRAZODONE HYDROCHLORIDE [Concomitant]
     Active Substance: TRAZODONE HYDROCHLORIDE
     Route: 048

REACTIONS (13)
  - Psoriatic arthropathy [Not Recovered/Not Resolved]
  - Rheumatoid arthritis [Not Recovered/Not Resolved]
  - Tenosynovitis stenosans [Unknown]
  - Parotid gland enlargement [Unknown]
  - Osteoarthritis [Unknown]
  - Fall [Unknown]
  - Excessive cerumen production [Unknown]
  - Neuropathy peripheral [Unknown]
  - Back pain [Not Recovered/Not Resolved]
  - Drug hypersensitivity [Unknown]
  - Pain in extremity [Recovered/Resolved]
  - Psoriasis [Unknown]
  - Therapy interrupted [Unknown]

NARRATIVE: CASE EVENT DATE: 20250401
